FAERS Safety Report 6063091-0 (Version None)
Quarter: 2009Q1

REPORT INFORMATION
  Report Type: 
  Country: None (occurrence: None)
  Receive Date: 20090203
  Receipt Date: 20090126
  Transmission Date: 20090719
  Serious: Yes (Other)
  Sender: FDA-Public Use
  Company Number: PHHY2008FR33140

PATIENT
  Age: 29 Year
  Sex: Female

DRUGS (4)
  1. LEPONEX [Suspect]
     Indication: MENTAL DISORDER
     Dosage: 400 MG/DAY
  2. LEPONEX [Suspect]
     Dosage: 25 MG/DAY
  3. LEPONEX [Suspect]
     Dosage: 75 MG ONCE A DAY
  4. HYPERICUM PERFORATUM [Concomitant]

REACTIONS (7)
  - ABDOMINAL PAIN [None]
  - EYE DISORDER [None]
  - LOSS OF CONSCIOUSNESS [None]
  - MALAISE [None]
  - NAUSEA [None]
  - PALLOR [None]
  - SYNCOPE [None]
